FAERS Safety Report 7542773-5 (Version None)
Quarter: 2011Q2

REPORT INFORMATION
  Report Type: 
  Country: None (occurrence: None)
  Receive Date: 20110613
  Receipt Date: 20110523
  Transmission Date: 20111010
  Serious: Yes (Hospitalization, Other)
  Sender: FDA-Public Use
  Company Number: B0722306A

PATIENT
  Sex: Female

DRUGS (4)
  1. PAXIL [Suspect]
     Indication: OBSESSIVE-COMPULSIVE DISORDER
     Route: 048
     Dates: start: 20110512, end: 20110522
  2. FLUPHENAZINE [Concomitant]
     Indication: SCHIZOPHRENIA
     Dosage: 6MG PER DAY
     Route: 048
  3. SEROQUEL [Concomitant]
     Indication: SCHIZOPHRENIA
     Dosage: 400MG PER DAY
     Route: 048
  4. ZYPREXA [Concomitant]
     Indication: SCHIZOPHRENIA
     Dosage: 20MG PER DAY
     Route: 048

REACTIONS (3)
  - VISUAL IMPAIRMENT [None]
  - LOSS OF CONSCIOUSNESS [None]
  - CONVULSION [None]
